FAERS Safety Report 16623793 (Version 2)
Quarter: 2019Q3

REPORT INFORMATION
  Report Type: Spontaneous
  Country: CH (occurrence: CH)
  Receive Date: 20190724
  Receipt Date: 20190724
  Transmission Date: 20191004
  Serious: Yes (Hospitalization, Other)
  Sender: FDA-Public Use
  Company Number: CH-009507513-1907CHE010617

PATIENT
  Age: 54 Year
  Sex: Female
  Weight: 45 kg

DRUGS (4)
  1. REMERON [Suspect]
     Active Substance: MIRTAZAPINE
     Indication: SLEEP DISORDER
     Dosage: 5 DOSAGE FORM, QD
     Route: 048
     Dates: start: 20190618, end: 20190628
  2. TEMESTA [Concomitant]
     Dosage: 2.5 MG HALF A TABLET TWICE DAILY
     Route: 048
  3. FLOXYFRAL [Concomitant]
     Active Substance: FLUVOXAMINE
     Dosage: 100 MG ONCE DAILY
     Route: 048
  4. VENLAFAXINE HYDROCHLORIDE. [Concomitant]
     Active Substance: VENLAFAXINE HYDROCHLORIDE
     Dosage: 75 MG (1 DOSAGE FORM) ONCE DAILY
     Route: 048

REACTIONS (2)
  - Drug abuse [Recovered/Resolved]
  - Serotonin syndrome [Recovered/Resolved]

NARRATIVE: CASE EVENT DATE: 20190618
